FAERS Safety Report 24156750 (Version 1)
Quarter: 2024Q3

REPORT INFORMATION
  Report Type: Spontaneous
  Country: US (occurrence: None)
  Receive Date: 20240730
  Receipt Date: 20240730
  Transmission Date: 20241017
  Serious: Yes (Other)
  Sender: Public
  Company Number: None

PATIENT
  Age: 80 Year
  Sex: Male
  Weight: 83.25 kg

DRUGS (2)
  1. DUPIXENT [Suspect]
     Active Substance: DUPILUMAB
     Indication: Dermatitis atopic
     Dosage: 2 ML EVERY 2 WEEKS SUBCUTANEOUS
     Route: 058
     Dates: start: 20240501, end: 20240730
  2. DUPIXENT [Concomitant]
     Active Substance: DUPILUMAB
     Dates: start: 20240501, end: 20240730

REACTIONS (5)
  - Injection site reaction [None]
  - Injection site pain [None]
  - Injection site pruritus [None]
  - Injection site erythema [None]
  - Hypersensitivity [None]

NARRATIVE: CASE EVENT DATE: 20240730
